FAERS Safety Report 11685408 (Version 1)
Quarter: 2015Q4

REPORT INFORMATION
  Report Type: Spontaneous
  Country: FR (occurrence: FR)
  Receive Date: 20151030
  Receipt Date: 20151030
  Transmission Date: 20160304
  Serious: Yes (Hospitalization)
  Sender: FDA-Public Use
  Company Number: FR-ALVOGEN-2015-ALVOGEN-019383

PATIENT
  Age: 80 Year
  Sex: Female

DRUGS (13)
  1. BACLOFEN. [Interacting]
     Active Substance: BACLOFEN
     Indication: PRODUCT USED FOR UNKNOWN INDICATION
     Dosage: 2 DF QD
     Route: 048
  2. MACROGOL 4000 [Interacting]
     Active Substance: POLYETHYLENE GLYCOL 4000
     Indication: PRODUCT USED FOR UNKNOWN INDICATION
  3. PREDNISOLONE. [Interacting]
     Active Substance: PREDNISOLONE
     Indication: PRODUCT USED FOR UNKNOWN INDICATION
  4. RILUZOLE. [Interacting]
     Active Substance: RILUZOLE
     Indication: PRODUCT USED FOR UNKNOWN INDICATION
     Route: 048
  5. PAROXETINE HYDROCHLORIDE. [Interacting]
     Active Substance: PAROXETINE HYDROCHLORIDE
     Indication: PRODUCT USED FOR UNKNOWN INDICATION
     Route: 048
  6. IPRATROPIUM BROMIDE. [Interacting]
     Active Substance: IPRATROPIUM BROMIDE
     Indication: PRODUCT USED FOR UNKNOWN INDICATION
     Dosage: 1PUFF DAILY IH
     Route: 045
  7. LEVOTHYROXINE SODIUM. [Interacting]
     Active Substance: LEVOTHYROXINE SODIUM
     Indication: PRODUCT USED FOR UNKNOWN INDICATION
     Dosage: 75 UG/L
     Route: 048
  8. DIGOXIN. [Interacting]
     Active Substance: DIGOXIN
     Indication: PRODUCT USED FOR UNKNOWN INDICATION
     Route: 048
  9. VERAPAMIL HYDROCHLORIDE. [Interacting]
     Active Substance: VERAPAMIL HYDROCHLORIDE
     Indication: PRODUCT USED FOR UNKNOWN INDICATION
     Route: 048
  10. FUROSEMIDE. [Interacting]
     Active Substance: FUROSEMIDE
     Indication: PRODUCT USED FOR UNKNOWN INDICATION
     Route: 048
  11. TERBUTALINE SULFATE. [Interacting]
     Active Substance: TERBUTALINE SULFATE
     Indication: PRODUCT USED FOR UNKNOWN INDICATION
     Dosage: 2 PUFF DAILY IH
     Route: 055
  12. ACETYLSALICYLATE LYSINE [Interacting]
     Active Substance: ASPIRIN DL-LYSINE
     Indication: PRODUCT USED FOR UNKNOWN INDICATION
     Route: 048
  13. ZESTRIL [Suspect]
     Active Substance: LISINOPRIL
     Indication: PRODUCT USED FOR UNKNOWN INDICATION
     Route: 048

REACTIONS (14)
  - Abdominal distension [Unknown]
  - C-reactive protein increased [Unknown]
  - Tongue dry [Unknown]
  - Drug interaction [Unknown]
  - Nausea [Unknown]
  - Oxygen saturation decreased [Unknown]
  - Speech disorder [Unknown]
  - Electrocardiogram ST segment abnormal [Unknown]
  - Depression [Unknown]
  - Renal impairment [Unknown]
  - Vomiting [Unknown]
  - Abnormal faeces [Unknown]
  - Cardioactive drug level increased [Unknown]
  - Decreased appetite [Unknown]
